FAERS Safety Report 4372058-X (Version None)
Quarter: 2004Q2

REPORT INFORMATION
  Report Type: 
  Country: None (occurrence: None)
  Receive Date: 20040602
  Receipt Date: 20040514
  Transmission Date: 20050107
  Serious: Yes (Other)
  Sender: FDA-Public Use
  Company Number: DSA_24455_2004

PATIENT
  Age: 50 Year
  Sex: Male

DRUGS (3)
  1. TILDIEM [Suspect]
     Indication: HYPERTENSION
     Dosage: 300 MG Q DAY PO
     Route: 048
     Dates: start: 20030924, end: 20030928
  2. HYGROTON [Concomitant]
  3. SEROXAT ^CIBA-GEIGY^ [Concomitant]

REACTIONS (3)
  - BLOOD PRESSURE INCREASED [None]
  - BRADYCARDIA [None]
  - FEELING ABNORMAL [None]
